FAERS Safety Report 10739331 (Version 1)
Quarter: 2015Q1

REPORT INFORMATION
  Report Type: Report from Study
  Country: DE (occurrence: DE)
  Receive Date: 20150126
  Receipt Date: 20150126
  Transmission Date: 20150721
  Serious: Yes (Hospitalization)
  Sender: FDA-Public Use
  Company Number: DE-ABBVIE-14P-062-1321905-00

PATIENT
  Age: 57 Year
  Sex: Male

DRUGS (3)
  1. DUODOPA [Suspect]
     Active Substance: CARBIDOPA\LEVODOPA
     Dosage: MD 6ML,CRD 5.7ML/H,CRN 5.7ML/H,ED 1.5ML
     Route: 050
     Dates: start: 20130626
  2. DUODOPA [Suspect]
     Active Substance: CARBIDOPA\LEVODOPA
     Indication: PARKINSON^S DISEASE
     Route: 050
     Dates: start: 20130618, end: 20130626
  3. SEROQUEL [Concomitant]
     Active Substance: QUETIAPINE FUMARATE
     Indication: PRODUCT USED FOR UNKNOWN INDICATION
     Dosage: REDUCED STEPWISE
     Dates: end: 201501

REACTIONS (9)
  - Hallucination [Unknown]
  - Blood creatinine decreased [Unknown]
  - Vitamin B6 deficiency [Unknown]
  - Psychotic disorder [Not Recovered/Not Resolved]
  - Blood creatine phosphokinase increased [Unknown]
  - Pain in extremity [Unknown]
  - Delusional disorder, unspecified type [Recovering/Resolving]
  - Musculoskeletal discomfort [Unknown]
  - Peripheral sensorimotor neuropathy [Unknown]

NARRATIVE: CASE EVENT DATE: 201404
